FAERS Safety Report 6123570-4 (Version None)
Quarter: 2009Q1

REPORT INFORMATION
  Report Type: 
  Country: None (occurrence: None)
  Receive Date: 20090318
  Receipt Date: 20090318
  Transmission Date: 20090719
  Serious: Yes (Other)
  Sender: FDA-Public Use
  Company Number: None

PATIENT
  Sex: Male
  Weight: 66.2 kg

DRUGS (1)
  1. PHENYTOIN [Suspect]
     Indication: EPILEPSY
     Dosage: 300 MG QDAY PO
     Route: 048
     Dates: start: 20090201, end: 20090209

REACTIONS (3)
  - ANTICONVULSANT DRUG LEVEL ABOVE THERAPEUTIC [None]
  - ATAXIA [None]
  - THERAPEUTIC RESPONSE UNEXPECTED WITH DRUG SUBSTITUTION [None]
